FAERS Safety Report 11510753 (Version 2)
Quarter: 2015Q3

REPORT INFORMATION
  Report Type: Spontaneous
  Country: FR (occurrence: FR)
  Receive Date: 20150915
  Receipt Date: 20150922
  Transmission Date: 20151125
  Serious: Yes (Death, Other)
  Sender: FDA-Public Use
  Company Number: FR-PFIZER INC-2015302806

PATIENT
  Age: 4 Week
  Sex: Male
  Weight: .68 kg

DRUGS (16)
  1. CELESTENE /00008501/ [Suspect]
     Active Substance: BETAMETHASONE
     Dosage: 0.063 MG/KG, DAILY
     Route: 042
     Dates: start: 20141223, end: 20141223
  2. INEXIUM /01479302/ [Suspect]
     Active Substance: ESOMEPRAZOLE MAGNESIUM
     Indication: REGURGITATION
     Dosage: UNK
     Route: 048
     Dates: start: 20150106, end: 20150117
  3. FERROSTRANE [Suspect]
     Active Substance: SODIUM FEREDETATE
     Indication: ANAEMIA
     Dosage: 2 MG/KG, DAILY
     Route: 048
     Dates: start: 20150110, end: 20150114
  4. FERROSTRANE [Suspect]
     Active Substance: SODIUM FEREDETATE
     Dosage: 3 MG/KG, DAILY
     Route: 048
     Dates: start: 20150114, end: 20150116
  5. RIFAMYCINE CHIBRET [Suspect]
     Active Substance: RIFAMYCIN
     Indication: INFECTION PROPHYLAXIS
     Dosage: UNK
     Route: 031
     Dates: start: 20141123
  6. CELESTENE /00008501/ [Suspect]
     Active Substance: BETAMETHASONE
     Indication: BRONCHOPULMONARY DYSPLASIA
     Dosage: 0.25 MG/KG, DAILY
     Route: 042
     Dates: start: 20141221, end: 20141222
  7. IBUPROFEN. [Suspect]
     Active Substance: IBUPROFEN
     Indication: PATENT DUCTUS ARTERIOSUS
     Dosage: 10 MG/KG, UNK
     Dates: start: 20141124, end: 20141124
  8. NEOSYNEPHRINE [Suspect]
     Active Substance: PHENYLEPHRINE HYDROCHLORIDE
     Dosage: UNK
     Dates: start: 20150120, end: 20150120
  9. MYDRIATICUM [Suspect]
     Active Substance: TROPICAMIDE
     Indication: DIAGNOSTIC PROCEDURE
     Dosage: UNK
     Route: 031
     Dates: start: 20150106, end: 20150106
  10. IBUPROFEN. [Suspect]
     Active Substance: IBUPROFEN
     Dosage: 5 MG/KG, UNK
     Dates: start: 20141125, end: 20141129
  11. NEOSYNEPHRINE [Suspect]
     Active Substance: PHENYLEPHRINE HYDROCHLORIDE
     Indication: DIAGNOSTIC PROCEDURE
     Dosage: UNK
     Route: 031
     Dates: start: 20150106, end: 20150106
  12. PULMICORT TURBUHALER [Suspect]
     Active Substance: BUDESONIDE
     Indication: BRONCHOPULMONARY DYSPLASIA
     Dosage: 0.25 MG, IN 12 HOURS
     Route: 055
     Dates: start: 20141217, end: 20141222
  13. CAFEINE COOPER [Suspect]
     Active Substance: CAFFEINE
     Indication: APNOEA NEONATAL
     Dosage: UNK
     Dates: start: 20141123, end: 20150124
  14. MYDRIATICUM [Suspect]
     Active Substance: TROPICAMIDE
     Dosage: UNK
     Dates: start: 20150120, end: 20150120
  15. PANTOPRAZOLE [Suspect]
     Active Substance: PANTOPRAZOLE SODIUM
     Indication: REGURGITATION
     Dosage: UNK
     Route: 042
     Dates: start: 20141229, end: 20150106
  16. ALDACTONE [Suspect]
     Active Substance: SPIRONOLACTONE
     Indication: BRONCHOPULMONARY DYSPLASIA
     Dosage: UNK
     Dates: start: 20141217, end: 20150116

REACTIONS (4)
  - Atelectasis neonatal [Unknown]
  - Necrotising enterocolitis neonatal [Fatal]
  - Staphylococcus test positive [Unknown]
  - Serratia infection [Unknown]

NARRATIVE: CASE EVENT DATE: 20141227
